FAERS Safety Report 8183051 (Version 4)
Quarter: 2013Q1

REPORT INFORMATION
  Report Type: Spontaneous
  Country: US (occurrence: US)
  Receive Date: 20111017
  Receipt Date: 20130306
  Transmission Date: 20140127
  Serious: Yes (Death, Congenital Anomaly, Other)
  Sender: FDA-Public Use
  Company Number: US-PFIZER INC-2011245023

PATIENT
  Sex: Male
  Weight: 1.4 kg

DRUGS (17)
  1. ZOLOFT [Suspect]
     Dosage: 25 MG, 1X/DAY (1/2 TABLET OF 50MG TABLET OF STARTER PACK)
     Route: 064
     Dates: start: 20090108, end: 200901
  2. ZOLOFT [Suspect]
     Dosage: 50 MG, 1X/DAY
     Route: 064
     Dates: start: 200901, end: 200902
  3. ZOLOFT [Suspect]
     Dosage: UNK
     Route: 064
     Dates: start: 200902, end: 200910
  4. PRENATAL VITAMINS [Concomitant]
     Dosage: UNK
     Route: 064
  5. FOLIC ACID [Concomitant]
     Dosage: UNK
     Route: 064
  6. AMBIEN [Concomitant]
     Dosage: UNK
     Route: 064
  7. PERCOCET [Concomitant]
     Dosage: UNK
     Route: 064
  8. METRONIDAZOLE [Concomitant]
     Dosage: 250 MG, 2 TABLETS, 2X/DAY
     Route: 064
     Dates: start: 20090501
  9. SERTRALINE HYDROCHLORIDE [Concomitant]
     Dosage: 100 MG, 1X/DAY
     Route: 064
     Dates: start: 20090519
  10. ZOLPIDEM TARTRATE [Concomitant]
     Dosage: 10 MG, ONE TABLET AT BEDTIME AS NEEDED
     Route: 064
     Dates: start: 20090630
  11. PROMETHAZINE HYDROCHLORIDE [Concomitant]
     Dosage: 25 MG, UNK
     Route: 064
     Dates: start: 20090905
  12. RANITIDINE HYDROCHLORIDE [Concomitant]
     Dosage: 150 MG, UNK
     Route: 064
     Dates: start: 20090905
  13. ONDANSETRON HYDROCHLORIDE [Concomitant]
     Dosage: 4 MG, UNK
     Route: 064
     Dates: start: 20090910
  14. PROCTOSOL-HC [Concomitant]
     Dosage: UNK
     Route: 064
     Dates: start: 20090913
  15. OXYCODONE-ACETAMINOPHEN [Concomitant]
     Dosage: 5MG-326MG, UNK
     Route: 064
     Dates: start: 20090915
  16. HYDROCODONE-ACETAMINOPHEN [Concomitant]
     Dosage: 5MG-500MG, UNK
     Route: 064
     Dates: start: 20090916
  17. FLOMAX [Concomitant]
     Dosage: 0.4 MG, UNK
     Route: 064
     Dates: start: 20090918

REACTIONS (2)
  - Maternal exposure timing unspecified [Fatal]
  - Anencephaly [Fatal]
